FAERS Safety Report 8695844 (Version 2)
Quarter: 2013Q4

REPORT INFORMATION
  Report Type: Spontaneous
  Country: US (occurrence: US)
  Receive Date: 20120731
  Receipt Date: 20131101
  Transmission Date: 20140711
  Serious: No
  Sender: FDA-Public Use
  Company Number: US-009507513-1207USA006010

PATIENT
  Age: 55 Year
  Sex: Female

DRUGS (2)
  1. AZASITE [Suspect]
     Indication: BLEPHARITIS
     Dosage: 2 DF, BID
     Route: 047
     Dates: start: 20120629
  2. AZASITE [Suspect]
     Indication: CONJUNCTIVITIS

REACTIONS (4)
  - Product packaging quantity issue [Not Recovered/Not Resolved]
  - Inappropriate schedule of drug administration [Unknown]
  - Drug dose omission [Unknown]
  - Drug ineffective [Not Recovered/Not Resolved]
